FAERS Safety Report 5344144-9 (Version None)
Quarter: 2007Q2

REPORT INFORMATION
  Report Type: 
  Country: None (occurrence: None)
  Receive Date: 20070604
  Receipt Date: 20070524
  Transmission Date: 20071010
  Serious: Yes (Other)
  Sender: FDA-Public Use
  Company Number: US-MERCK-0705USA05810

PATIENT
  Sex: Female

DRUGS (16)
  1. COZAAR [Suspect]
     Indication: HYPERTENSION
     Route: 048
     Dates: start: 20030101, end: 20031024
  2. COZAAR [Suspect]
     Route: 048
     Dates: start: 20060926
  3. COZAAR [Suspect]
     Route: 048
     Dates: end: 20030926
  4. COZAAR [Suspect]
     Route: 048
     Dates: start: 20031024
  5. ISOSORBIDE [Concomitant]
     Route: 065
  6. CYCLOBENZAPRINE HYDROCHLORIDE [Concomitant]
     Route: 065
  7. VIOXX [Concomitant]
     Route: 048
  8. CITRACAL [Concomitant]
     Route: 065
  9. TOPROL-XL [Concomitant]
     Route: 065
  10. CLOBETASOL PROPIONATE [Concomitant]
     Route: 065
  11. HYDROXYCHLOROQUINE SULFATE [Concomitant]
     Route: 065
  12. EVISTA [Concomitant]
     Route: 065
  13. NITROGLYCERIN [Concomitant]
     Route: 065
  14. ASPIRIN [Concomitant]
     Route: 065
  15. FOLIC ACID [Concomitant]
     Route: 065
  16. VITAMIN E [Concomitant]
     Route: 065

REACTIONS (5)
  - BLOOD PRESSURE INCREASED [None]
  - BUNDLE BRANCH BLOCK RIGHT [None]
  - ELECTROCARDIOGRAM ST-T SEGMENT ABNORMAL [None]
  - HYPERTENSIVE CRISIS [None]
  - REFUSAL OF TREATMENT BY PATIENT [None]
